FAERS Safety Report 14945341 (Version 1)
Quarter: 2018Q2

REPORT INFORMATION
  Report Type: Spontaneous
  Country: US (occurrence: US)
  Receive Date: 20180529
  Receipt Date: 20180529
  Transmission Date: 20180711
  Serious: No
  Sender: FDA-Public Use
  Company Number: US-BIODELIVERY SCIENCES INTERNATIONAL-2018BDSI0028

PATIENT
  Sex: Female

DRUGS (1)
  1. BUPRENORPHINE. [Suspect]
     Active Substance: BUPRENORPHINE
     Indication: PRODUCT USED FOR UNKNOWN INDICATION
     Dosage: UNKNOWN;UNKNOWN
     Route: 002

REACTIONS (8)
  - Nausea [Unknown]
  - Heart rate irregular [Unknown]
  - Therapeutic response decreased [Unknown]
  - Headache [Unknown]
  - Product adhesion issue [Unknown]
  - Dizziness [Unknown]
  - Diarrhoea [Unknown]
  - Oral administration complication [Unknown]

NARRATIVE: CASE EVENT DATE: 2018
